FAERS Safety Report 18086560 (Version 1)
Quarter: 2020Q3

REPORT INFORMATION
  Report Type: Spontaneous
  Country: GB (occurrence: GB)
  Receive Date: 20200728
  Receipt Date: 20200728
  Transmission Date: 20201103
  Serious: Yes (Other)
  Sender: FDA-Public Use
  Company Number: GB-BAXTER-2020BAX014733

PATIENT
  Age: 63 Year
  Sex: Female

DRUGS (8)
  1. PROPOFOL 20MG/ML EMULSION FOR INJECTION/INFUSION [Suspect]
     Active Substance: PROPOFOL
     Indication: COUGH
     Dosage: BOLUS DOSE
     Route: 040
  2. BUPIVACAINE?CLARIS 5MG/ML SOLUTION FOR INJECTION [Suspect]
     Active Substance: BUPIVACAINE HYDROCHLORIDE
     Indication: ANAESTHESIA PROCEDURE
     Route: 065
  3. PARACETAMOL [Concomitant]
     Active Substance: ACETAMINOPHEN
     Indication: PRODUCT USED FOR UNKNOWN INDICATION
     Route: 065
  4. OMEPRAZOLE. [Concomitant]
     Active Substance: OMEPRAZOLE
     Indication: PRODUCT USED FOR UNKNOWN INDICATION
     Route: 065
  5. IBUPROFEN. [Concomitant]
     Active Substance: IBUPROFEN
     Indication: PRODUCT USED FOR UNKNOWN INDICATION
     Route: 065
  6. OXYGEN. [Concomitant]
     Active Substance: OXYGEN
     Indication: PRODUCT USED FOR UNKNOWN INDICATION
     Dosage: SEVOFLURANE IN AN OXYGEN
     Route: 055
  7. METOCLOPRAMIDE. [Concomitant]
     Active Substance: METOCLOPRAMIDE
     Indication: PRODUCT USED FOR UNKNOWN INDICATION
     Route: 065
  8. SEVOFLURANE. [Concomitant]
     Active Substance: SEVOFLURANE
     Indication: MAINTENANCE OF ANAESTHESIA
     Dosage: SEVOFLURANE IN AN OXYGEN AND AIR MIXTURE
     Route: 055

REACTIONS (2)
  - Pneumothorax [Recovered/Resolved]
  - Therapeutic response unexpected [Recovered/Resolved]
